FAERS Safety Report 7962715-8 (Version None)
Quarter: 2011Q4

REPORT INFORMATION
  Report Type: 
  Country: None (occurrence: None)
  Receive Date: 20111207
  Receipt Date: 20111128
  Transmission Date: 20120403
  Serious: Yes (Other)
  Sender: FDA-Public Use
  Company Number: JP-ASTRAZENECA-2011SE54593

PATIENT
  Age: 59 Year
  Sex: Female
  Weight: 51 kg

DRUGS (6)
  1. IRESSA [Suspect]
     Indication: LUNG ADENOCARCINOMA
     Route: 048
     Dates: start: 20110810, end: 20110911
  2. TRAMADOL HYDROCHLORIDE [Concomitant]
     Indication: METASTASES TO BONE
     Route: 048
     Dates: start: 20110727, end: 20110930
  3. BROCIN CODEINE [Concomitant]
     Indication: COUGH
     Route: 048
     Dates: start: 20110714
  4. LANSOPRAZOLE [Concomitant]
     Indication: ABDOMINAL PAIN UPPER
     Route: 048
     Dates: start: 20110726
  5. URSO 250 [Concomitant]
     Indication: LIVER DISORDER
     Route: 048
     Dates: start: 20110819
  6. LOXOPROFEN [Concomitant]
     Indication: METASTASES TO BONE
     Route: 048
     Dates: start: 20110726, end: 20110930

REACTIONS (2)
  - LIVER DISORDER [None]
  - CYSTITIS HAEMORRHAGIC [None]
